FAERS Safety Report 8954169 (Version 3)
Quarter: 2013Q3

REPORT INFORMATION
  Report Type: Report from Study
  Country: JP (occurrence: JP)
  Receive Date: 20121207
  Receipt Date: 20130917
  Transmission Date: 20140515
  Serious: Yes (Other)
  Sender: FDA-Public Use
  Company Number: JP-VERTEX PHARMACEUTICALS INC.-2012-025737

PATIENT
  Age: 70 Year
  Sex: Male

DRUGS (9)
  1. VX-950 (TELAPREVIR) [Suspect]
     Indication: CHRONIC HEPATITIS C
     Dosage: 1500 MG, QD
     Route: 048
     Dates: start: 20120606, end: 20120617
  2. VX-950 (TELAPREVIR) [Suspect]
     Dosage: 750 MG, QD
     Route: 048
     Dates: start: 20120618, end: 20120826
  3. RIBAVIRIN [Suspect]
     Indication: CHRONIC HEPATITIS C
     Dosage: 400 MG, QD
     Route: 048
     Dates: start: 20120606, end: 20120617
  4. RIBAVIRIN [Suspect]
     Dosage: 200 MG, QD
     Route: 048
     Dates: start: 20120618, end: 20120911
  5. PEGINTRON [Suspect]
     Indication: CHRONIC HEPATITIS C
     Dosage: 1.5 ?G/KG, QW
     Route: 058
     Dates: start: 20120606, end: 20120912
  6. HUMACART R [Concomitant]
     Dosage: 2 IU, QD
     Route: 058
     Dates: start: 20120607, end: 20120610
  7. GLYCYRON [Concomitant]
     Dosage: 6 DF, QD
     Route: 048
     Dates: start: 20120628, end: 20120703
  8. URSO [Concomitant]
     Dosage: 600 MG, QD
     Route: 048
     Dates: start: 20120628, end: 20120703
  9. PROMAC [Concomitant]
     Dosage: 150 MG, QD
     Route: 048
     Dates: start: 20120704, end: 20121112

REACTIONS (2)
  - Blood creatinine increased [Not Recovered/Not Resolved]
  - Haemoglobin decreased [Recovered/Resolved]
